FAERS Safety Report 15696818 (Version 1)
Quarter: 2018Q4

REPORT INFORMATION
  Report Type: Spontaneous
  Country: US (occurrence: US)
  Receive Date: 20181206
  Receipt Date: 20181206
  Transmission Date: 20190205
  Serious: No
  Sender: FDA-Public Use
  Company Number: US-PFIZER INC-2018492412

PATIENT
  Age: 63 Year
  Sex: Male
  Weight: 101.13 kg

DRUGS (19)
  1. AUGMENTIN BD [Suspect]
     Active Substance: AMOXICILLIN\CLAVULANIC ACID
     Indication: SINUSITIS
     Dosage: UNK
  2. CIALIS [Concomitant]
     Active Substance: TADALAFIL
     Indication: BENIGN PROSTATIC HYPERPLASIA
     Dosage: 5 MG, 1X/DAY
  3. FLECAINIDE [Concomitant]
     Active Substance: FLECAINIDE
     Indication: CARDIAC DISORDER
     Dosage: 50 MG, 2X/DAY
  4. MINOCYCLINE [Concomitant]
     Active Substance: MINOCYCLINE\MINOCYCLINE HYDROCHLORIDE
     Indication: ROSACEA
     Dosage: 100 MG, AS NEEDED, [100 MG, ONE CAPSULE TWICE A DAY FOR 14 DAYS AS NEEDED]
  5. FUROSEMIDE. [Concomitant]
     Active Substance: FUROSEMIDE
     Indication: FLUID RETENTION
     Dosage: 20 MG, 1X/DAY
  6. HYDROCHLOROTHIAZIDE. [Concomitant]
     Active Substance: HYDROCHLOROTHIAZIDE
     Dosage: 12.5 MG, 1X/DAY (IN THE MORNING)
  7. AZELASTINE. [Concomitant]
     Active Substance: AZELASTINE HYDROCHLORIDE
     Dosage: 0.05 %, AS NEEDED
  8. XELJANZ [Suspect]
     Active Substance: TOFACITINIB CITRATE
     Indication: NEURALGIA
  9. LEVOTHYROXINE. [Concomitant]
     Active Substance: LEVOTHYROXINE
     Indication: HYPOTHYROIDISM
     Dosage: 0.75 MG, UNK, [0.75 MG, ONCE]
  10. XELJANZ [Suspect]
     Active Substance: TOFACITINIB CITRATE
     Indication: PSORIATIC ARTHROPATHY
     Dosage: 5 MG, 2X/DAY
  11. XELJANZ [Suspect]
     Active Substance: TOFACITINIB CITRATE
     Indication: MUSCULOSKELETAL PAIN
  12. UREA. [Concomitant]
     Active Substance: UREA
     Indication: SKIN DISORDER
     Dosage: UNK UNK, DAILY, [CREAM 40%, APPLY DAILY]
  13. AMOXICILLIN. [Concomitant]
     Active Substance: AMOXICILLIN
     Indication: JOINT DISLOCATION
     Dosage: 500 MG, AS NEEDED
  14. HYQVIA [Concomitant]
     Active Substance: HUMAN IMMUNOGLOBULIN G\HYALURONIDASE RECOMBINANT HUMAN
     Indication: IMMUNODEFICIENCY COMMON VARIABLE
     Dosage: 35 G, MONTHLY
     Route: 058
  15. LIDOCAINE 5% EXTRA [Concomitant]
     Dosage: UNK, AS NEEDED
  16. METRONIDAZOLE. [Concomitant]
     Active Substance: METRONIDAZOLE
     Indication: ROSACEA
     Dosage: UNK UNK, AS NEEDED, [AS NEEDED BUT USE IT ONCE A DAY]
  17. CLOBETASOL PROPIONATE. [Concomitant]
     Active Substance: CLOBETASOL PROPIONATE
     Indication: PSORIASIS
     Dosage: UNK UNK, AS NEEDED
  18. XELJANZ [Suspect]
     Active Substance: TOFACITINIB CITRATE
     Indication: PAIN IN EXTREMITY
  19. TESTOSTERONE CYPIONATE. [Concomitant]
     Active Substance: TESTOSTERONE CYPIONATE
     Indication: HYPOGONADISM
     Dosage: 1 ML, UNK (INJECT ONE ML INTRAMUSCULAR EVERY TWO WEEKS)
     Route: 030

REACTIONS (2)
  - Urticaria [Unknown]
  - Rash [Unknown]
